FAERS Safety Report 7793843-8 (Version None)
Quarter: 2011Q4

REPORT INFORMATION
  Report Type: 
  Country: None (occurrence: None)
  Receive Date: 20111004
  Receipt Date: 20110923
  Transmission Date: 20120403
  Serious: Yes (Other)
  Sender: FDA-Public Use
  Company Number: US-AMGEN-USASP2011049704

PATIENT
  Age: 56 Year
  Sex: Male
  Weight: 116.5 kg

DRUGS (3)
  1. INSULIN [Concomitant]
  2. IRON SUCROSE [Concomitant]
  3. ARANESP [Suspect]
     Indication: RENAL FAILURE CHRONIC
     Dosage: 25 MUG, UNK
     Dates: start: 20101101, end: 20110913

REACTIONS (7)
  - HYPOTENSION [None]
  - OEDEMA PERIPHERAL [None]
  - OEDEMA [None]
  - ABDOMINAL PAIN UPPER [None]
  - WEIGHT INCREASED [None]
  - DIABETES MELLITUS INADEQUATE CONTROL [None]
  - LIMB PROSTHESIS USER [None]
